FAERS Safety Report 16223112 (Version 2)
Quarter: 2019Q2

REPORT INFORMATION
  Report Type: Report from Study
  Country: US (occurrence: US)
  Receive Date: 20190422
  Receipt Date: 20190624
  Transmission Date: 20190711
  Serious: Yes (Hospitalization, Other)
  Sender: FDA-Public Use
  Company Number: US-MYLANLABS-2019M1034883

PATIENT
  Age: 21 Year
  Sex: Female

DRUGS (63)
  1. TOBI [Suspect]
     Active Substance: TOBRAMYCIN
     Dosage: 2 DF (300), QD
     Route: 055
     Dates: start: 20160505, end: 20160517
  2. TOBI PODHALER [Suspect]
     Active Substance: TOBRAMYCIN
     Indication: CYSTIC FIBROSIS
     Dosage: 2 DF (112), QD
     Route: 055
     Dates: start: 20161013, end: 20161110
  3. CAYSTON [Suspect]
     Active Substance: AZTREONAM
     Dosage: 3 DF (75), QD
     Route: 065
     Dates: start: 20161221, end: 20170104
  4. CAYSTON [Suspect]
     Active Substance: AZTREONAM
     Dosage: 3 DF (75), QD
     Route: 065
     Dates: start: 20170525, end: 20170622
  5. FLEET                              /00103901/ [Concomitant]
     Indication: CONSTIPATION
     Dosage: UNK
     Route: 065
     Dates: start: 20160412, end: 20160421
  6. TOBRAMYCIN. [Concomitant]
     Active Substance: TOBRAMYCIN
     Indication: CYSTIC FIBROSIS LUNG
     Dosage: UNK
     Route: 065
     Dates: start: 20170104, end: 20170105
  7. TOBRAMYCIN. [Concomitant]
     Active Substance: TOBRAMYCIN
     Dosage: UNK
     Route: 065
     Dates: start: 20180214
  8. ALTEPLASE. [Concomitant]
     Active Substance: ALTEPLASE
     Indication: PRODUCT USED FOR UNKNOWN INDICATION
     Dosage: UNK
     Dates: start: 20160609
  9. CLARITIN [Concomitant]
     Active Substance: LORATADINE
     Indication: HEADACHE
     Dosage: UNK
     Route: 065
     Dates: start: 20150601
  10. MIRALAX [Concomitant]
     Active Substance: POLYETHYLENE GLYCOL 3350
     Indication: CONSTIPATION
     Dosage: UNK
     Dates: start: 20140101
  11. ITRACONAZOLE. [Concomitant]
     Active Substance: ITRACONAZOLE
     Dosage: UNK
     Dates: start: 20150812, end: 20151111
  12. ZITHROMAX [Concomitant]
     Active Substance: AZITHROMYCIN DIHYDRATE
     Indication: PROPHYLAXIS
     Dosage: UNK
  13. TOBI PODHALER [Suspect]
     Active Substance: TOBRAMYCIN
     Indication: PSEUDOMONAS INFECTION
  14. TOBI [Suspect]
     Active Substance: TOBRAMYCIN
     Dosage: 2 DF (300), QD
     Route: 055
     Dates: start: 20160728, end: 20160825
  15. TOBI PODHALER [Suspect]
     Active Substance: TOBRAMYCIN
     Dosage: 2 DF(112), UNK
     Route: 055
     Dates: start: 20180207, end: 20180214
  16. CAYSTON [Suspect]
     Active Substance: AZTREONAM
     Dosage: 3 DF (75), QD
     Route: 065
     Dates: start: 20180124, end: 20180207
  17. PRILOSEC [Concomitant]
     Active Substance: OMEPRAZOLE MAGNESIUM
     Indication: CYSTIC FIBROSIS
     Dosage: UNK
     Route: 065
     Dates: start: 20150810
  18. LIDOCAINE. [Concomitant]
     Active Substance: LIDOCAINE
     Indication: PAIN
     Dosage: UNK
     Route: 065
     Dates: start: 20160524, end: 20160524
  19. SEPTRA [Concomitant]
     Active Substance: SULFAMETHOXAZOLE\TRIMETHOPRIM
     Indication: INFECTIVE PULMONARY EXACERBATION OF CYSTIC FIBROSIS
     Dosage: UNK
     Route: 065
     Dates: start: 20160709, end: 20160804
  20. ATIVAN [Concomitant]
     Active Substance: LORAZEPAM
     Dosage: UNK
     Dates: start: 20170327, end: 20170327
  21. VITAMIN D                          /00107901/ [Concomitant]
     Active Substance: ERGOCALCIFEROL
     Indication: OSTEOPENIA
     Dosage: UNK
     Dates: start: 20130218
  22. CLARITIN [Concomitant]
     Active Substance: LORATADINE
     Indication: HYPERSENSITIVITY
  23. CAYSTON [Suspect]
     Active Substance: AZTREONAM
     Indication: PRODUCT USED FOR UNKNOWN INDICATION
     Dosage: 3 DF (75), QD
     Route: 065
     Dates: start: 20160205, end: 20160304
  24. CAYSTON [Suspect]
     Active Substance: AZTREONAM
     Dosage: 3 DF (75), QD
     Route: 065
     Dates: start: 20160828, end: 20160907
  25. CAYSTON [Suspect]
     Active Substance: AZTREONAM
     Dosage: 3 DF (75), QD
     Route: 065
     Dates: start: 20161111, end: 20161209
  26. CAYSTON [Suspect]
     Active Substance: AZTREONAM
     Dosage: 3 DF (75), QD
     Route: 065
     Dates: start: 20170714, end: 20170811
  27. CAYSTON [Suspect]
     Active Substance: AZTREONAM
     Dosage: 3 DF (75), QD
     Route: 065
     Dates: start: 20170824, end: 20170921
  28. CIPRO                              /00697204/ [Concomitant]
     Indication: BRONCHITIS
     Dosage: UNK
     Route: 065
     Dates: start: 20160225, end: 20160310
  29. VORICONAZOLE. [Concomitant]
     Active Substance: VORICONAZOLE
     Indication: INFECTIVE PULMONARY EXACERBATION OF CYSTIC FIBROSIS
     Dosage: UNK
     Route: 065
     Dates: start: 20160417, end: 20160421
  30. SEPTRA [Concomitant]
     Active Substance: SULFAMETHOXAZOLE\TRIMETHOPRIM
     Dosage: UNK
     Route: 065
     Dates: start: 20160728, end: 20160907
  31. LEVAQUIN [Concomitant]
     Active Substance: LEVOFLOXACIN
     Indication: CYSTIC FIBROSIS
     Dosage: UNK
     Route: 065
     Dates: start: 20170308, end: 20170321
  32. ASMANEX [Concomitant]
     Active Substance: MOMETASONE FUROATE
     Indication: ASTHMA
     Dosage: UNK
     Route: 065
     Dates: start: 20160406
  33. TOBI PODHALER [Suspect]
     Active Substance: TOBRAMYCIN
     Dosage: 2 DF (112), QD
     Route: 055
     Dates: start: 20170106, end: 20170206
  34. TOBI PODHALER [Suspect]
     Active Substance: TOBRAMYCIN
     Dosage: 2 DF(112), UNK
     Route: 055
     Dates: start: 20170623, end: 20170712
  35. CAYSTON [Suspect]
     Active Substance: AZTREONAM
     Dosage: 3 DF (75), QD
     Route: 065
     Dates: start: 20160909, end: 20161012
  36. CAYSTON [Suspect]
     Active Substance: AZTREONAM
     Dosage: 3 DF (75), QD
     Route: 065
     Dates: start: 20171019, end: 20171116
  37. VERSED [Concomitant]
     Active Substance: MIDAZOLAM HYDROCHLORIDE
     Indication: CENTRAL VENOUS CATHETERISATION
     Dosage: UNK
     Route: 065
     Dates: start: 20160401, end: 20160401
  38. TIGECYCLINE. [Concomitant]
     Active Substance: TIGECYCLINE
     Indication: PNEUMONIA
     Dosage: UNK
     Route: 065
     Dates: start: 20160406, end: 20160408
  39. PHENERGAN DM [Concomitant]
     Active Substance: DEXTROMETHORPHAN HYDROBROMIDE\PROMETHAZINE HYDROCHLORIDE
     Indication: NAUSEA
     Dosage: UNK
     Route: 065
     Dates: start: 20160603
  40. PREDNISONE. [Concomitant]
     Active Substance: PREDNISONE
     Indication: CYSTIC FIBROSIS
     Dosage: UNK
     Route: 065
     Dates: start: 20170308, end: 20170313
  41. LEVONORGESTREL. [Concomitant]
     Active Substance: LEVONORGESTREL
     Indication: CONTRACEPTION
     Dosage: UNK
     Dates: start: 20140101
  42. PULMOZYME [Concomitant]
     Active Substance: DORNASE ALFA
     Indication: CYSTIC FIBROSIS
     Dosage: UNK
     Dates: start: 20151207
  43. INFLUENZA VACCINE [Concomitant]
     Active Substance: INFLUENZA VIRUS VACCINE
     Indication: PROPHYLAXIS
     Dosage: UNK
     Route: 065
     Dates: start: 20161001, end: 20161001
  44. ASPIRIN                            /00002701/ [Concomitant]
     Active Substance: ASPIRIN
     Dosage: UNK
     Route: 065
     Dates: start: 20190115
  45. ATIVAN [Concomitant]
     Active Substance: LORAZEPAM
     Dosage: UNK
     Route: 065
     Dates: start: 20160524, end: 20160524
  46. PROZAC [Concomitant]
     Active Substance: FLUOXETINE HYDROCHLORIDE
     Indication: DEPRESSION
     Dosage: UNK
     Route: 065
     Dates: start: 20151204, end: 20151204
  47. TOBI PODHALER [Suspect]
     Active Substance: TOBRAMYCIN
     Indication: CYSTIC FIBROSIS
     Dosage: UNK
     Route: 055
  48. TOBI [Suspect]
     Active Substance: TOBRAMYCIN
     Indication: CYSTIC FIBROSIS
     Dosage: 2 DF (300), QD
     Route: 055
     Dates: start: 20160104, end: 20160204
  49. TOBI PODHALER [Suspect]
     Active Substance: TOBRAMYCIN
     Dosage: 2 DF (112), QD
     Route: 055
     Dates: start: 20170308, end: 20170327
  50. CAYSTON [Suspect]
     Active Substance: AZTREONAM
     Dosage: 3 DF (75), QD
     Route: 065
     Dates: start: 20160328, end: 20160331
  51. TOBI [Suspect]
     Active Substance: TOBRAMYCIN
     Indication: PSEUDOMONAS INFECTION
     Dosage: 2 DF (300), QD
     Route: 055
     Dates: start: 20160305, end: 20160327
  52. TOBI [Suspect]
     Active Substance: TOBRAMYCIN
     Dosage: 2 DF (300), QD
     Route: 055
     Dates: start: 20160525, end: 20160604
  53. TOBI [Suspect]
     Active Substance: TOBRAMYCIN
     Dosage: 1 DF (300), TID
     Route: 065
     Dates: start: 20170501
  54. TOBI PODHALER [Suspect]
     Active Substance: TOBRAMYCIN
     Indication: PSEUDOMONAS INFECTION
     Dosage: 2 DF (112), QD
     Route: 055
     Dates: start: 20161210, end: 20161221
  55. CAYSTON [Suspect]
     Active Substance: AZTREONAM
     Dosage: 3 DF (75), QD
     Route: 065
     Dates: start: 20170207, end: 20170307
  56. BETHKIS [Suspect]
     Active Substance: TOBRAMYCIN
     Indication: PRODUCT USED FOR UNKNOWN INDICATION
     Dosage: 2 DF (300), QD
     Route: 065
     Dates: start: 20160520, end: 20160525
  57. TPN [Concomitant]
     Active Substance: AMINO ACIDS\DEXTROSE\ELECTROLYTES NOS\SOYBEAN OIL
     Indication: SUPPLEMENTATION THERAPY
     Dosage: UNK
     Route: 065
     Dates: start: 20160524, end: 20160524
  58. TOBRAMYCIN. [Concomitant]
     Active Substance: TOBRAMYCIN
     Indication: PSEUDOMONAS INFECTION
     Dosage: UNK
     Route: 065
     Dates: start: 20160622, end: 20160630
  59. ASPIRIN                            /00002701/ [Concomitant]
     Active Substance: ASPIRIN
     Indication: CYSTIC FIBROSIS
     Dosage: UNK
     Dates: start: 20160620, end: 20160824
  60. SOLU-MEDROL [Concomitant]
     Active Substance: METHYLPREDNISOLONE SODIUM SUCCINATE
     Indication: CYSTIC FIBROSIS
     Dosage: UNK
     Dates: start: 20150819, end: 20160527
  61. CAYSTON [Suspect]
     Active Substance: AZTREONAM
     Dosage: 3 DF (75), QD
     Route: 065
     Dates: start: 20160630, end: 20160707
  62. ATIVAN [Concomitant]
     Active Substance: LORAZEPAM
     Indication: ANXIETY
     Dosage: UNK
     Dates: start: 20160104, end: 20160401
  63. FLOVENT [Concomitant]
     Active Substance: FLUTICASONE PROPIONATE
     Indication: INFECTIVE PULMONARY EXACERBATION OF CYSTIC FIBROSIS
     Dosage: UNK
     Route: 065
     Dates: start: 20150821

REACTIONS (13)
  - Cough [Recovered/Resolved]
  - Bronchitis [Recovered/Resolved]
  - Bronchiectasis [Recovered/Resolved]
  - Sepsis [Recovered/Resolved]
  - Pyrexia [Recovered/Resolved]
  - Device dislocation [Recovered/Resolved]
  - Haemoptysis [Recovered/Resolved]
  - Bronchopulmonary aspergillosis allergic [Recovered/Resolved]
  - Infective pulmonary exacerbation of cystic fibrosis [Recovered/Resolved]
  - Pancreatitis [Recovered/Resolved]
  - Alanine aminotransferase increased [Recovered/Resolved]
  - Acne [Unknown]
  - Fatigue [Unknown]

NARRATIVE: CASE EVENT DATE: 20160123
